FAERS Safety Report 10359336 (Version 1)
Quarter: 2014Q3

REPORT INFORMATION
  Report Type: Spontaneous
  Country: US (occurrence: None)
  Receive Date: 20140801
  Receipt Date: 20140801
  Transmission Date: 20150326
  Serious: Yes (Disabling)
  Sender: FDA-Public Use
  Company Number: None

PATIENT
  Age: 60 Year
  Sex: Female
  Weight: 48.99 kg

DRUGS (3)
  1. OMEPRAZOLE 20MG [Concomitant]
  2. PROLIA [Suspect]
     Active Substance: DENOSUMAB
     Indication: OSTEOPOROSIS
     Dosage: INJ., TWICE A YEAR, INJECTABLE
     Dates: start: 201312
  3. EST/PROG, IML SYRINGE [Concomitant]

REACTIONS (18)
  - Pruritus [None]
  - Rash [None]
  - Back pain [None]
  - Abdominal pain lower [None]
  - Dyspnoea [None]
  - Myalgia [None]
  - Chills [None]
  - Asthenia [None]
  - Oral herpes [None]
  - Unevaluable event [None]
  - Urticaria [None]
  - Arthralgia [None]
  - Fatigue [None]
  - Jaw disorder [None]
  - Pain [None]
  - Pain in extremity [None]
  - Pollakiuria [None]
  - Feeling hot [None]

NARRATIVE: CASE EVENT DATE: 201312
